FAERS Safety Report 12743569 (Version 2)
Quarter: 2016Q4

REPORT INFORMATION
  Report Type: Spontaneous
  Country: US (occurrence: US)
  Receive Date: 20160914
  Receipt Date: 20161201
  Transmission Date: 20170207
  Serious: Yes (Other)
  Sender: FDA-Public Use
  Company Number: US-BAYER-2016-175085

PATIENT
  Sex: Male

DRUGS (1)
  1. AVELOX [Suspect]
     Active Substance: MOXIFLOXACIN HYDROCHLORIDE
     Dosage: 400 MG, UNK
     Dates: start: 201110

REACTIONS (13)
  - Hypoaesthesia [None]
  - Paraesthesia [None]
  - Anxiety [None]
  - Pain in extremity [None]
  - Neuropathy peripheral [None]
  - Pain [None]
  - Visual impairment [None]
  - Musculoskeletal stiffness [None]
  - Headache [None]
  - Balance disorder [None]
  - Asthenia [None]
  - Muscular weakness [None]
  - Injury [None]
